FAERS Safety Report 14952783 (Version 1)
Quarter: 2018Q2

REPORT INFORMATION
  Report Type: Spontaneous
  Country: JP (occurrence: JP)
  Receive Date: 20180530
  Receipt Date: 20180530
  Transmission Date: 20180711
  Serious: Yes (Other)
  Sender: FDA-Public Use
  Company Number: JP-BRISTOL-MYERS SQUIBB COMPANY-BMS-2018-049460

PATIENT
  Age: 50 Year
  Sex: Male

DRUGS (1)
  1. OPDIVO [Suspect]
     Active Substance: NIVOLUMAB
     Indication: NON-SMALL CELL LUNG CANCER
     Dosage: 214.5 MG, UNK
     Route: 041
     Dates: start: 20161216, end: 20171215

REACTIONS (2)
  - Malignant neoplasm progression [Unknown]
  - Adrenal disorder [Recovered/Resolved]

NARRATIVE: CASE EVENT DATE: 20170619
